FAERS Safety Report 9744057 (Version 1)
Quarter: 2013Q4

REPORT INFORMATION
  Report Type: Spontaneous
  Country: US (occurrence: US)
  Receive Date: 20131210
  Receipt Date: 20131210
  Transmission Date: 20140711
  Serious: Yes (Other)
  Sender: FDA-Public Use
  Company Number: US-BAYER-2013-148629

PATIENT
  Age: 69 Year
  Sex: Male
  Weight: 69.84 kg

DRUGS (1)
  1. ALKA-SELTZER PLUS SEVERE SINUS CONGESTION + COUGH LIQUID GEL [Suspect]
     Indication: NASOPHARYNGITIS
     Dosage: 2 DF, OTHER FREQUENCY
     Route: 048
     Dates: start: 20131203, end: 20131203

REACTIONS (1)
  - Choking [Recovered/Resolved]
